FAERS Safety Report 9817191 (Version 2)
Quarter: 2014Q2

REPORT INFORMATION
  Report Type: Spontaneous
  Country: US (occurrence: US)
  Receive Date: 20140114
  Receipt Date: 20140502
  Transmission Date: 20141212
  Serious: Yes (Hospitalization, Other)
  Sender: FDA-Public Use
  Company Number: US-GILEAD-2014-0092046

PATIENT
  Sex: Male

DRUGS (2)
  1. LETAIRIS [Suspect]
     Indication: PULMONARY ARTERIAL HYPERTENSION
     Dosage: 5 MG, QD
     Route: 065
     Dates: start: 20130730
  2. ADCIRCA [Concomitant]

REACTIONS (4)
  - Cellulitis [Unknown]
  - Catheterisation cardiac [Unknown]
  - Contrast media allergy [Unknown]
  - Renal impairment [Unknown]
